FAERS Safety Report 15711066 (Version 1)
Quarter: 2018Q4

REPORT INFORMATION
  Report Type: Spontaneous
  Country: RU (occurrence: RU)
  Receive Date: 20181211
  Receipt Date: 20181211
  Transmission Date: 20190205
  Serious: Yes (Other)
  Sender: FDA-Public Use
  Company Number: PHHY2018RU180909

PATIENT
  Age: 11 Year
  Sex: Female
  Weight: 59 kg

DRUGS (2)
  1. METHOTREXATE. [Suspect]
     Active Substance: METHOTREXATE
     Indication: JUVENILE IDIOPATHIC ARTHRITIS
     Dosage: 15 MG, QD
     Route: 030
  2. METOJECT [Concomitant]
     Active Substance: METHOTREXATE SODIUM
     Indication: JUVENILE IDIOPATHIC ARTHRITIS
     Route: 030

REACTIONS (5)
  - Pruritus [Recovering/Resolving]
  - Diarrhoea [Recovering/Resolving]
  - Headache [Recovering/Resolving]
  - Nausea [Recovering/Resolving]
  - Retching [Recovering/Resolving]
